FAERS Safety Report 5786355-4 (Version None)
Quarter: 2008Q2

REPORT INFORMATION
  Report Type: 
  Country: None (occurrence: None)
  Receive Date: 20080624
  Receipt Date: 20070814
  Transmission Date: 20081010
  Serious: No
  Sender: FDA-Public Use
  Company Number: US-ASTRAZENECA-2007UW19636

PATIENT
  Age: 85 Year
  Sex: Male

DRUGS (4)
  1. PULMICORT [Suspect]
     Route: 055
  2. ALBUTEROL [Concomitant]
  3. COMBIVENT [Concomitant]
  4. ATROVENT [Concomitant]

REACTIONS (1)
  - CHEST PAIN [None]
